FAERS Safety Report 23295412 (Version 1)
Quarter: 2023Q4

REPORT INFORMATION
  Report Type: Spontaneous
  Country: US (occurrence: US)
  Receive Date: 20231214
  Receipt Date: 20231214
  Transmission Date: 20240109
  Serious: No
  Sender: FDA-Public Use
  Company Number: US-ALVOGEN-2023092363

PATIENT
  Sex: Male

DRUGS (1)
  1. FENTANYL [Suspect]
     Active Substance: FENTANYL\FENTANYL CITRATE
     Indication: Pain
     Dosage: EXPIRATION DATE: UU-MAR-2026.?REFILLED ON 02-OCT-2023?STRENGTH: 50 MCG/ HR

REACTIONS (3)
  - Device malfunction [Unknown]
  - Device adhesion issue [Unknown]
  - Wrong technique in product usage process [Unknown]
